FAERS Safety Report 6962954-9 (Version None)
Quarter: 2010Q3

REPORT INFORMATION
  Report Type: 
  Country: None (occurrence: None)
  Receive Date: 20100902
  Receipt Date: 20100823
  Transmission Date: 20110219
  Serious: Yes (Other)
  Sender: FDA-Public Use
  Company Number: US-ROCHE-720613

PATIENT
  Sex: Female

DRUGS (1)
  1. MYCOPHENOLATE MOFETIL [Suspect]
     Indication: PRODUCT USED FOR UNKNOWN INDICATION
     Dosage: THERAPY START DATE: 2005 OR 2006 (PATIENT NOT SURE).
     Route: 065
     Dates: start: 20050101

REACTIONS (3)
  - DIARRHOEA [None]
  - FALL [None]
  - SPINAL COMPRESSION FRACTURE [None]
